FAERS Safety Report 12841466 (Version 2)
Quarter: 2016Q4

REPORT INFORMATION
  Report Type: Spontaneous
  Country: DE (occurrence: DE)
  Receive Date: 20161012
  Receipt Date: 20161028
  Transmission Date: 20170207
  Serious: Yes (Other)
  Sender: FDA-Public Use
  Company Number: DE-PFIZER INC-2016470800

PATIENT
  Sex: Male

DRUGS (3)
  1. VENLAFAXINE HCL [Suspect]
     Active Substance: VENLAFAXINE HYDROCHLORIDE
     Indication: DEPRESSION
     Dosage: 75 MG, DAILY GESTATIONAL WEEK 0-7
     Route: 064
  2. VENLAFAXINE HCL [Suspect]
     Active Substance: VENLAFAXINE HYDROCHLORIDE
     Dosage: 37.5 MG, DAILY, FROM GESTATIONAL WEEK 10 UNTIL DELIVERY (37.1 GW)
     Route: 064
  3. FOLIC ACID. [Concomitant]
     Active Substance: FOLIC ACID
     Indication: PROPHYLAXIS OF NEURAL TUBE DEFECT
     Dosage: 8.5. - 11.4. GESTATIONAL WEEK
     Route: 064
     Dates: start: 20150407, end: 20150427

REACTIONS (2)
  - Maternal exposure during pregnancy [Unknown]
  - Small for dates baby [Recovering/Resolving]

NARRATIVE: CASE EVENT DATE: 20151023
